FAERS Safety Report 4340341-X (Version None)
Quarter: 2004Q1

REPORT INFORMATION
  Report Type: 
  Country: None (occurrence: None)
  Receive Date: 20040330
  Receipt Date: 20040312
  Transmission Date: 20041129
  Serious: Yes (Other)
  Sender: FDA-Public Use
  Company Number: 2004SA000014

PATIENT
  Age: 72 Year
  Sex: Female

DRUGS (2)
  1. THYMOGLOBULIN [Suspect]
     Indication: MYELODYSPLASTIC SYNDROME
     Dosage: 3.75 MG/KG; DAILY; INTRAVENOUS
     Route: 042
     Dates: start: 19981001, end: 19981001
  2. METHYLPREDNISOLONE [Concomitant]

REACTIONS (1)
  - PSYCHOTIC DISORDER [None]
